FAERS Safety Report 13952432 (Version 1)
Quarter: 2017Q3

REPORT INFORMATION
  Report Type: Spontaneous
  Country: US (occurrence: US)
  Receive Date: 20170911
  Receipt Date: 20170911
  Transmission Date: 20171128
  Serious: No
  Sender: FDA-Public Use
  Company Number: US-TEVA-726123ACC

PATIENT
  Age: 30 Year
  Sex: Female
  Weight: 64 kg

DRUGS (6)
  1. LYRICA [Concomitant]
     Active Substance: PREGABALIN
  2. FENTANYL. [Suspect]
     Active Substance: FENTANYL
     Indication: PRODUCT USED FOR UNKNOWN INDICATION
     Dosage: DOSE: 25 MCG/HOUR
     Dates: start: 201612, end: 201703
  3. CLONAZEPAM. [Concomitant]
     Active Substance: CLONAZEPAM
  4. FLUOXETINE [Concomitant]
     Active Substance: FLUOXETINE HYDROCHLORIDE
  5. NEXOPLANON [Concomitant]
  6. ADDERALL [Concomitant]
     Active Substance: AMPHETAMINE ASPARTATE\AMPHETAMINE SULFATE\DEXTROAMPHETAMINE SACCHARATE\DEXTROAMPHETAMINE SULFATE

REACTIONS (2)
  - Application site pruritus [Unknown]
  - Application site vesicles [Unknown]

NARRATIVE: CASE EVENT DATE: 20161229
